FAERS Safety Report 8884715 (Version 2)
Quarter: 2012Q4

REPORT INFORMATION
  Report Type: 
  Country: JP (occurrence: JP)
  Receive Date: 20121102
  Receipt Date: 20121119
  Transmission Date: 20130627
  Serious: Yes (Other)
  Sender: FDA-Public Use
  Company Number: JP-NOVOPROD-362853

PATIENT
  Age: 53 Year
  Sex: Male
  Weight: 111 kg

DRUGS (5)
  1. VICTOZA HIKACHU INJECTION [Suspect]
     Indication: TYPE 2 DIABETES MELLITUS
     Dosage: 0.3 mg, qd
     Route: 058
     Dates: start: 20110122
  2. VICTOZA HIKACHU INJECTION [Suspect]
     Dosage: 0.6 mg, qd
     Route: 058
     Dates: start: 20110205
  3. VICTOZA HIKACHU INJECTION [Suspect]
     Dosage: 0.9 mg, qd
     Route: 058
     Dates: start: 20110219, end: 20120303
  4. AMARYL [Concomitant]
     Indication: TYPE 2 DIABETES MELLITUS
     Dosage: 0.5 mg, qd
     Route: 048
     Dates: start: 20100704
  5. GLACTIV [Concomitant]
     Dosage: 50 mg, qd
     Dates: start: 20100704

REACTIONS (1)
  - Pancreatic neuroendocrine tumour [Not Recovered/Not Resolved]
